FAERS Safety Report 6169077-X (Version None)
Quarter: 2009Q2

REPORT INFORMATION
  Report Type: 
  Country: None (occurrence: None)
  Receive Date: 20090427
  Receipt Date: 20090420
  Transmission Date: 20091009
  Serious: Yes (Hospitalization)
  Sender: FDA-Public Use
  Company Number: US-ASTRAZENECA-2009UW09970

PATIENT
  Age: 80 Year
  Sex: Female

DRUGS (2)
  1. SEROQUEL XR [Suspect]
     Indication: AGGRESSION
     Route: 048
  2. DIURTETIC [Concomitant]

REACTIONS (2)
  - AGGRESSION [None]
  - DRUG INEFFECTIVE [None]
